FAERS Safety Report 20922788 (Version 1)
Quarter: 2022Q2

REPORT INFORMATION
  Report Type: Report from Study
  Country: CA (occurrence: CA)
  Receive Date: 20220607
  Receipt Date: 20220607
  Transmission Date: 20220721
  Serious: Yes (Death, Other)
  Sender: FDA-Public Use
  Company Number: CA-BAYER-2022A078726

PATIENT
  Age: 66 Year
  Sex: Male

DRUGS (1)
  1. EYLEA [Suspect]
     Active Substance: AFLIBERCEPT
     Indication: Diabetic retinal oedema
     Dosage: 2MG/0.05ML, UNK; SOLUTION FOR INJECTION
     Route: 031
     Dates: start: 20160411, end: 20220107

REACTIONS (1)
  - Death [Fatal]

NARRATIVE: CASE EVENT DATE: 20220107
